FAERS Safety Report 6913411 (Version 3)
Quarter: 2013Q3

REPORT INFORMATION
  Report Type: Report from Study
  Country: US (occurrence: US)
  Receive Date: 20090219
  Receipt Date: 20130808
  Transmission Date: 20140515
  Serious: Yes (Life-Threatening, Hospitalization)
  Sender: FDA-Public Use
  Company Number: US-BRISTOL-MYERS SQUIBB COMPANY-14509871

PATIENT
  Age: 76 Year
  Sex: Male
  Weight: 59 kg

DRUGS (3)
  1. ERBITUX [Suspect]
     Indication: OESOPHAGEAL ADENOCARCINOMA
     Dosage: STARTED ON 05JAN2009
     Dates: start: 20090126, end: 20090126
  2. CISPLATIN [Suspect]
     Indication: OESOPHAGEAL ADENOCARCINOMA
     Dosage: STARTED ON 05JAN2009
     Dates: start: 20090126, end: 20090126
  3. TAXOL [Suspect]
     Indication: OESOPHAGEAL ADENOCARCINOMA
     Dosage: STARTED ON 05JAN2009
     Dates: start: 20090126, end: 20090126

REACTIONS (4)
  - Vomiting [Unknown]
  - Nausea [Unknown]
  - Dysphagia [Unknown]
  - Fatigue [Unknown]
